FAERS Safety Report 8860320 (Version 3)
Quarter: 2012Q4

REPORT INFORMATION
  Report Type: 
  Country: US (occurrence: US)
  Receive Date: 20121025
  Receipt Date: 20121212
  Transmission Date: 20130627
  Serious: No
  Sender: FDA-Public Use
  Company Number: US-PFIZER INC-2012264933

PATIENT
  Age: 55 Year
  Sex: Female
  Weight: 44 kg

DRUGS (4)
  1. XALKORI [Suspect]
     Indication: LUNG CANCER
     Dosage: 250 mg, 2x/day
     Route: 048
  2. XALKORI [Suspect]
     Indication: BRAIN METASTASES
  3. VITAMIN D [Concomitant]
     Dosage: 1000 IU
  4. DEXAMETHASONE [Concomitant]
     Dosage: UNK

REACTIONS (2)
  - Ageusia [Unknown]
  - Constipation [Unknown]
